FAERS Safety Report 11239841 (Version 11)
Quarter: 2016Q4

REPORT INFORMATION
  Report Type: Spontaneous
  Country: US (occurrence: US)
  Receive Date: 20150706
  Receipt Date: 20161114
  Transmission Date: 20170206
  Serious: No
  Sender: FDA-Public Use
  Company Number: US-PFIZER INC-2015219954

PATIENT
  Age: 64 Year
  Sex: Female
  Weight: 41.73 kg

DRUGS (11)
  1. LYRICA [Suspect]
     Active Substance: PREGABALIN
     Indication: BURNING SENSATION
     Dosage: 75 MG, 3X/DAY
     Route: 048
  2. LYRICA [Interacting]
     Active Substance: PREGABALIN
     Dosage: 50 MG, UNK
  3. ALOE VERA [Interacting]
     Active Substance: ALOE VERA LEAF
     Indication: VULVOVAGINAL PAIN
     Dosage: UNK
  4. LYRICA [Interacting]
     Active Substance: PREGABALIN
     Indication: VULVOVAGINAL PAIN
     Dosage: 50 MG, 3X/DAY
     Route: 048
  5. LYRICA [Interacting]
     Active Substance: PREGABALIN
     Dosage: 125 MG, 3X/DAY
     Route: 048
  6. PROBIOTIC 10 [Concomitant]
     Dosage: UNK UNK, 2X/DAY
  7. KLONOPIN [Concomitant]
     Active Substance: CLONAZEPAM
     Indication: ANXIETY
     Dosage: 0.5 MG, UNK
  8. LYRICA [Interacting]
     Active Substance: PREGABALIN
     Dosage: 75 MG, 1X/DAY (QD)
  9. ALOE VERA [Interacting]
     Active Substance: ALOE VERA LEAF
     Indication: VULVOVAGINAL PAIN
     Dosage: UNK
     Dates: start: 201608
  10. LYRICA [Interacting]
     Active Substance: PREGABALIN
     Dosage: UNK
     Dates: start: 2014
  11. KLONOPIN [Concomitant]
     Active Substance: CLONAZEPAM
     Dosage: 1 MG, UNK

REACTIONS (20)
  - Malaise [Unknown]
  - Condition aggravated [Unknown]
  - Memory impairment [Unknown]
  - Drug interaction [Not Recovered/Not Resolved]
  - Dizziness [Unknown]
  - Musculoskeletal discomfort [Recovering/Resolving]
  - Dysgeusia [Unknown]
  - Condition aggravated [Unknown]
  - Fungal infection [Unknown]
  - Intentional product misuse [Unknown]
  - Back pain [Unknown]
  - Irritable bowel syndrome [Unknown]
  - Pain [Unknown]
  - Constipation [Unknown]
  - Burning sensation [Unknown]
  - Stress [Unknown]
  - Nausea [Unknown]
  - Intervertebral disc degeneration [Unknown]
  - Blood cholesterol abnormal [Unknown]
  - Muscle strain [Unknown]

NARRATIVE: CASE EVENT DATE: 2014
